FAERS Safety Report 10179134 (Version 2)
Quarter: 2014Q2

REPORT INFORMATION
  Report Type: Spontaneous
  Country: CZ (occurrence: CZ)
  Receive Date: 20140519
  Receipt Date: 20140520
  Transmission Date: 20141212
  Serious: Yes (Other)
  Sender: FDA-Public Use
  Company Number: CZ-PFIZER INC-2014134577

PATIENT
  Age: 83 Year
  Sex: Female

DRUGS (7)
  1. SOLU-MEDROL [Suspect]
     Indication: HENOCH-SCHONLEIN PURPURA
     Dosage: PULSE INTRAVENOUS, 500MG IV FOR 3 DAYS 7MG/KG
     Route: 042
  2. HEPARIN [Suspect]
  3. PREDNISON [Suspect]
     Indication: HENOCH-SCHONLEIN PURPURA
     Dosage: 30MG 10MG-0
     Route: 048
  4. FOSINOPRIL [Concomitant]
     Dosage: LOW DOSE
  5. FUROSEMID [Concomitant]
     Dosage: LOW DOSE
  6. SPIRONOLACTONE [Concomitant]
  7. RIVOTRIL [Concomitant]
     Indication: INSOMNIA

REACTIONS (1)
  - Cerebral haemorrhage [Unknown]
